FAERS Safety Report 8089184-4 (Version None)
Quarter: 2012Q1

REPORT INFORMATION
  Report Type: 
  Country: None (occurrence: None)
  Receive Date: 20120128
  Receipt Date: 20110627
  Transmission Date: 20120608
  Serious: No
  Sender: FDA-Public Use
  Company Number: US-ABBOTT-11P-163-0731982-00

PATIENT
  Age: 42 Year
  Sex: Male

DRUGS (2)
  1. LAMISIL [Concomitant]
     Indication: PRODUCT USED FOR UNKNOWN INDICATION
     Dosage: DAILY
     Route: 048
  2. HUMIRA [Suspect]
     Indication: PSORIASIS
     Dates: start: 20110113

REACTIONS (3)
  - INJECTION SITE PAIN [None]
  - DEVICE MALFUNCTION [None]
  - INCORRECT DOSE ADMINISTERED [None]
